FAERS Safety Report 6326529-7 (Version None)
Quarter: 2009Q3

REPORT INFORMATION
  Report Type: 
  Country: None (occurrence: None)
  Receive Date: 20090825
  Receipt Date: 20090819
  Transmission Date: 20100115
  Serious: Yes (Hospitalization, Other)
  Sender: FDA-Public Use
  Company Number: NL-BAYER-200929097GPV

PATIENT
  Age: 57 Year
  Sex: Male

DRUGS (6)
  1. FLUDARABINE PHOSPHATE [Suspect]
     Indication: CHRONIC LYMPHOCYTIC LEUKAEMIA
     Route: 042
     Dates: start: 20070901
  2. FLUDARABINE PHOSPHATE [Suspect]
     Dosage: 4 CYCLES
     Dates: start: 20060601, end: 20061001
  3. CYCLOPHOSPHAMIDE [Suspect]
     Indication: CHRONIC LYMPHOCYTIC LEUKAEMIA
     Dosage: 4 CYCLES
     Dates: start: 20060601, end: 20061001
  4. CYCLOSPORINE [Suspect]
     Indication: PROPHYLAXIS AGAINST GRAFT VERSUS HOST DISEASE
     Dates: start: 20070901
  5. ANTITHYMOCYTE GLOBULIN [Concomitant]
     Indication: STEM CELL TRANSPLANT
     Route: 042
     Dates: start: 20070901
  6. MYCOPHENOLATE MOPHETIL [Concomitant]
     Indication: PROPHYLAXIS AGAINST GRAFT VERSUS HOST DISEASE
     Dates: start: 20070901

REACTIONS (8)
  - GRAFT VERSUS HOST DISEASE [None]
  - LYMPHOPENIA [None]
  - NEUTROPENIA [None]
  - POLYOMAVIRUS-ASSOCIATED NEPHROPATHY [None]
  - RENAL FAILURE [None]
  - RENAL FAILURE ACUTE [None]
  - RENAL IMPAIRMENT [None]
  - SEPTIC SHOCK [None]
